FAERS Safety Report 7489915-8 (Version None)
Quarter: 2011Q2

REPORT INFORMATION
  Report Type: 
  Country: None (occurrence: None)
  Receive Date: 20110512
  Receipt Date: 20110429
  Transmission Date: 20111010
  Serious: Yes (Life-Threatening, Other)
  Sender: FDA-Public Use
  Company Number: 2011CP000064

PATIENT
  Age: 12 Year
  Sex: Male

DRUGS (3)
  1. ACETAMINOPHEN [Suspect]
     Indication: PAIN
     Dosage: IV
     Route: 042
  2. MORPHINE [Suspect]
     Indication: PAIN
  3. DICLOFENAC SODIUM [Suspect]
     Indication: PAIN

REACTIONS (2)
  - DRUG INEFFECTIVE [None]
  - MEGACOLON [None]
